FAERS Safety Report 4672568-1 (Version None)
Quarter: 2005Q2

REPORT INFORMATION
  Report Type: 
  Country: None (occurrence: None)
  Receive Date: 20050524
  Receipt Date: 20050517
  Transmission Date: 20051028
  Serious: Yes (Other)
  Sender: FDA-Public Use
  Company Number: US-GLAXOSMITHKLINE-A0559383A

PATIENT
  Sex: Male

DRUGS (3)
  1. WELLBUTRIN XL [Suspect]
     Indication: ATTENTION DEFICIT/HYPERACTIVITY DISORDER
     Dosage: 150MG UNKNOWN
     Route: 048
  2. ESKALITH CR [Concomitant]
     Indication: DRUG USE FOR UNKNOWN INDICATION
     Dosage: 450MG TWICE PER DAY
     Route: 048
  3. SLEEPING PILL [Concomitant]
     Indication: SLEEP DISORDER

REACTIONS (5)
  - AGITATION [None]
  - DEPRESSION [None]
  - DYSKINESIA [None]
  - FEELING ABNORMAL [None]
  - SUICIDAL IDEATION [None]
